FAERS Safety Report 12033288 (Version 1)
Quarter: 2016Q1

REPORT INFORMATION
  Report Type: Report from Study
  Country: US (occurrence: US)
  Receive Date: 20160207
  Receipt Date: 20160207
  Transmission Date: 20160526
  Serious: Yes (Hospitalization)
  Sender: FDA-Public Use
  Company Number: US-ABBVIE-15K-163-1513924-00

PATIENT
  Age: 53 Year
  Sex: Female

DRUGS (1)
  1. HUMIRA [Suspect]
     Active Substance: ADALIMUMAB
     Indication: CROHN^S DISEASE
     Route: 058
     Dates: start: 201505, end: 20151029

REACTIONS (20)
  - Weight decreased [Unknown]
  - Nausea [Unknown]
  - Diarrhoea [Not Recovered/Not Resolved]
  - Constipation [Unknown]
  - Insomnia [Unknown]
  - Infection [Not Recovered/Not Resolved]
  - Depressed mood [Unknown]
  - Asthma [Unknown]
  - Migraine [Unknown]
  - Pyrexia [Unknown]
  - Rectal haemorrhage [Unknown]
  - Abdominal pain upper [Unknown]
  - Vomiting [Unknown]
  - Chills [Not Recovered/Not Resolved]
  - Psoriasis [Unknown]
  - Anxiety [Unknown]
  - Fear [Unknown]
  - Malaise [Unknown]
  - Neuropathy peripheral [Unknown]
  - Diarrhoea [Unknown]

NARRATIVE: CASE EVENT DATE: 2015
